FAERS Safety Report 26082067 (Version 1)
Quarter: 2025Q4

REPORT INFORMATION
  Report Type: Spontaneous
  Country: US (occurrence: None)
  Receive Date: 20251122
  Receipt Date: 20251122
  Transmission Date: 20260118
  Serious: Yes (Disabling)
  Sender: FDA-CTU
  Company Number: None

PATIENT
  Sex: Female

DRUGS (2)
  1. ESCITALOPRAM [Suspect]
     Active Substance: ESCITALOPRAM OXALATE
     Indication: Anxiety
  2. ESCITALOPRAM [Suspect]
     Active Substance: ESCITALOPRAM OXALATE
     Indication: Depression

REACTIONS (16)
  - Brain fog [None]
  - Weight increased [None]
  - Fatigue [None]
  - Withdrawal syndrome [None]
  - Anxiety [None]
  - Depression [None]
  - Tremor [None]
  - Vomiting [None]
  - Hot flush [None]
  - Obsessive-compulsive disorder [None]
  - Lactose intolerance [None]
  - Chills [None]
  - Pollakiuria [None]
  - Agitation [None]
  - Myalgia [None]
  - Restless legs syndrome [None]
